FAERS Safety Report 8806002 (Version 2)
Quarter: 2012Q4

REPORT INFORMATION
  Report Type: Spontaneous
  Country: GB (occurrence: None)
  Receive Date: 20120918
  Receipt Date: 20121130
  Transmission Date: 20130627
  Serious: Yes (Disabling, Other)
  Sender: FDA-Public Use
  Company Number: GER/UKI/12/0025811

PATIENT
  Age: 61 Year
  Sex: Female
  Weight: 97 kg

DRUGS (10)
  1. OMEPRAZOLE (OMEPRAZOLE) [Suspect]
     Indication: DRUG USE FOR UNKNOWN INDICATION
     Route: 048
  2. OMEPRAZOLE (OMEPRAZOLE) [Suspect]
     Indication: GERD
     Route: 048
  3. OMEPRAZOLE (OMEPRAZOLE) [Suspect]
     Indication: DRUG USE FOR UNKNOWN INDICATION
     Route: 048
     Dates: end: 201202
  4. OMEPRAZOLE (OMEPRAZOLE) [Suspect]
     Indication: GERD
     Route: 048
     Dates: end: 201202
  5. ADCAL-D3 (LEKOVIT CA) [Concomitant]
  6. ANTIBIOTICS (ANTIBIOTICS) [Concomitant]
  7. CETIRIZINE (CETIRIZINE) [Concomitant]
  8. CORTICOSTEROIDS (CORTICOSTEROIDS) [Concomitant]
  9. SUCRALFATE (SUCRALFATE) [Concomitant]
  10. VITAMIN B12 (CYANOCOBALAMIN) [Concomitant]

REACTIONS (31)
  - Anaemia [None]
  - Dyspnoea [None]
  - Cellulitis [None]
  - Confusional state [None]
  - Depression [None]
  - Dry eye [None]
  - Dry mouth [None]
  - Eye haemorrhage [None]
  - Fall [None]
  - Breast disorder [None]
  - Pain [None]
  - Headache [None]
  - Intestinal haemorrhage [None]
  - Mouth haemorrhage [None]
  - Muscular weakness [None]
  - Gastrooesophageal reflux disease [None]
  - Osteopenia [None]
  - Skin burning sensation [None]
  - Erythema [None]
  - Oedema peripheral [None]
  - Tremor [None]
  - Angiopathy [None]
  - Visual impairment [None]
  - Photopsia [None]
  - Vitamin D deficiency [None]
  - Vitreous detachment [None]
  - Weight decreased [None]
  - Sjogren^s syndrome [None]
  - Haemorrhage [None]
  - Arthralgia [None]
  - Drug ineffective [None]
